FAERS Safety Report 9059739 (Version 1)
Quarter: 2013Q1

REPORT INFORMATION
  Report Type: Report from Study
  Country: US (occurrence: US)
  Receive Date: 20130211
  Receipt Date: 20130211
  Transmission Date: 20140127
  Serious: Yes (Other)
  Sender: FDA-Public Use
  Company Number: US-CELGENEUS-163-22393-13020678

PATIENT
  Age: 47 Year
  Sex: 0

DRUGS (2)
  1. ISTODAX [Suspect]
     Indication: MYCOSIS FUNGOIDES
     Dosage: 14 MILLIGRAM/SQ. METER
     Route: 065
  2. ISTODAX [Suspect]
     Dosage: 10 MILLIGRAM/SQ. METER
     Route: 065

REACTIONS (1)
  - Pancytopenia [Recovered/Resolved]
